FAERS Safety Report 4906737-X (Version None)
Quarter: 2006Q1

REPORT INFORMATION
  Report Type: 
  Country: None (occurrence: None)
  Receive Date: 20060113
  Receipt Date: 20050728
  Transmission Date: 20060701
  Serious: Yes (Other)
  Sender: FDA-Public Use
  Company Number: HQWYE647701AUG05

PATIENT
  Sex: Female

DRUGS (4)
  1. PREMPRO [Suspect]
  2. OGEN [Suspect]
  3. PREMARIN [Suspect]
     Dates: start: 19880101
  4. PROVERA [Suspect]
     Dates: start: 19880101

REACTIONS (1)
  - BREAST CANCER [None]
